FAERS Safety Report 20594509 (Version 1)
Quarter: 2022Q1

REPORT INFORMATION
  Report Type: Spontaneous
  Country: US (occurrence: US)
  Receive Date: 20220315
  Receipt Date: 20220315
  Transmission Date: 20220423
  Serious: Yes (Hospitalization)
  Sender: FDA-Public Use
  Company Number: US-ROCHE-3042108

PATIENT
  Sex: Female
  Weight: 119 kg

DRUGS (8)
  1. CLONAZEPAM [Suspect]
     Active Substance: CLONAZEPAM
     Indication: Product used for unknown indication
     Dosage: UNK
     Route: 065
  2. RITUXAN [Suspect]
     Active Substance: RITUXIMAB
     Indication: Arteritis
     Dosage: 375 MG, ONCE IN WEEK
     Route: 041
  3. ALBUTEROL [Concomitant]
     Active Substance: ALBUTEROL
     Dosage: UNK
     Route: 065
  4. AMLODIPINE [Concomitant]
     Active Substance: AMLODIPINE BESYLATE
     Dosage: UNK
     Route: 065
  5. BUDESONIDE\FORMOTEROL [Concomitant]
     Active Substance: BUDESONIDE\FORMOTEROL
     Dosage: UNK
     Route: 065
  6. CITALOPRAM [Concomitant]
     Active Substance: CITALOPRAM HYDROBROMIDE
     Dosage: UNK
     Route: 065
  7. GABAPENTIN [Concomitant]
     Active Substance: GABAPENTIN
     Dosage: UNK
     Route: 065
  8. LISINOPRIL [Concomitant]
     Active Substance: LISINOPRIL
     Dosage: UNK
     Route: 065

REACTIONS (14)
  - Granulomatosis with polyangiitis [Unknown]
  - Condition aggravated [Unknown]
  - Dysuria [Unknown]
  - Arthralgia [Unknown]
  - Back pain [Unknown]
  - Dizziness [Unknown]
  - Headache [Unknown]
  - Paranasal sinus discomfort [Unknown]
  - Swelling face [Unknown]
  - Dyspnoea [Unknown]
  - Nausea [Unknown]
  - Vomiting [Unknown]
  - Dysphoria [Unknown]
  - Depression [Unknown]
